FAERS Safety Report 5894835-6 (Version None)
Quarter: 2008Q3

REPORT INFORMATION
  Report Type: 
  Country: None (occurrence: None)
  Receive Date: 20080924
  Receipt Date: 20080916
  Transmission Date: 20090109
  Serious: Yes (Hospitalization)
  Sender: FDA-Public Use
  Company Number: US-ASTRAZENECA-2006UW08813

PATIENT
  Age: 76 Year
  Sex: Male
  Weight: 59 kg

DRUGS (6)
  1. NEXIUM [Suspect]
     Indication: DYSPEPSIA
     Route: 048
     Dates: start: 20020101
  2. SU-011, 248 [Suspect]
     Indication: RENAL CELL CARCINOMA
     Route: 048
     Dates: start: 20051107
  3. EPOGEN [Concomitant]
     Route: 058
     Dates: start: 20050701
  4. IRON [Concomitant]
     Route: 048
     Dates: start: 20050701
  5. LIPITOR [Concomitant]
     Indication: HYPERCHOLESTEROLAEMIA
     Route: 048
     Dates: start: 19950101
  6. RENAGEL [Concomitant]
     Route: 048
     Dates: start: 19951130

REACTIONS (1)
  - SMALL INTESTINAL OBSTRUCTION [None]
